FAERS Safety Report 16623277 (Version 2)
Quarter: 2019Q4

REPORT INFORMATION
  Report Type: Report from Study
  Country: None (occurrence: US)
  Receive Date: 20190724
  Receipt Date: 20191226
  Transmission Date: 20200122
  Serious: Yes (Hospitalization)
  Sender: FDA-Public Use
  Company Number: US-ABBVIE-19K-163-2862519-00

PATIENT
  Sex: Female
  Weight: 85.81 kg

DRUGS (2)
  1. HUMIRA [Suspect]
     Active Substance: ADALIMUMAB
     Route: 058
     Dates: start: 2019, end: 201906
  2. HUMIRA [Suspect]
     Active Substance: ADALIMUMAB
     Indication: PRODUCT USED FOR UNKNOWN INDICATION
     Route: 058
     Dates: end: 2019

REACTIONS (6)
  - Therapeutic product effect decreased [Unknown]
  - Crohn^s disease [Unknown]
  - Infection [Unknown]
  - Pyrexia [Unknown]
  - Abscess [Unknown]
  - Pain [Unknown]

NARRATIVE: CASE EVENT DATE: 2019
